FAERS Safety Report 6830594-8 (Version None)
Quarter: 2010Q3

REPORT INFORMATION
  Report Type: 
  Country: None (occurrence: None)
  Receive Date: 20100712
  Receipt Date: 20100705
  Transmission Date: 20110219
  Serious: Yes (Hospitalization, Disabling, Other)
  Sender: FDA-Public Use
  Company Number: SE-B.I. PHARMACEUTICALS,INC./RIDGEFIELD-2010-SW-00224SW

PATIENT
  Sex: Male

DRUGS (6)
  1. PERSANTIN [Suspect]
     Indication: CEREBROVASCULAR ACCIDENT
     Dates: end: 20090923
  2. PERSANTIN [Suspect]
     Dosage: 400 MG
     Dates: start: 20090924
  3. ACETYLCYSTEINE [Concomitant]
     Indication: PRODUCTIVE COUGH
  4. TROMBYL [Concomitant]
     Indication: CEREBROVASCULAR ACCIDENT
  5. SIMVASTATIN [Concomitant]
     Dosage: 20 MG
  6. SPIRIVA [Concomitant]
     Dosage: 1 ANZ
     Route: 055

REACTIONS (8)
  - ATAXIA [None]
  - BALANCE DISORDER [None]
  - CEREBRAL INFARCTION [None]
  - CEREBROVASCULAR ACCIDENT [None]
  - EPILEPSY [None]
  - LOSS OF CONSCIOUSNESS [None]
  - MUSCLE SPASMS [None]
  - VISUAL FIELD DEFECT [None]
